FAERS Safety Report 9721678 (Version 4)
Quarter: 2014Q2

REPORT INFORMATION
  Report Type: Spontaneous
  Country: US (occurrence: US)
  Receive Date: 20131201
  Receipt Date: 20140429
  Transmission Date: 20141212
  Serious: No
  Sender: FDA-Public Use
  Company Number: US-ABBVIE-13P-163-1112133-00

PATIENT
  Age: 72 Year
  Sex: Male
  Weight: 93.98 kg

DRUGS (4)
  1. ANDROGEL [Suspect]
     Indication: HYPOGONADISM
     Dosage: TWO PUMPS DAILY
     Route: 062
     Dates: start: 201204
  2. KLONOPIN [Concomitant]
     Indication: INSOMNIA
  3. CRESTOR [Concomitant]
     Indication: BLOOD CHOLESTEROL INCREASED
  4. ORAL HYPOGLYCEMIC [Concomitant]
     Indication: GLUCOSE TOLERANCE IMPAIRED
     Route: 048

REACTIONS (7)
  - Peripheral swelling [Recovering/Resolving]
  - Oedema peripheral [Recovering/Resolving]
  - Joint swelling [Recovering/Resolving]
  - Blood pressure increased [Not Recovered/Not Resolved]
  - Heart rate increased [Not Recovered/Not Resolved]
  - Off label use [Unknown]
  - Upper respiratory tract infection [Recovered/Resolved]
